FAERS Safety Report 8313868-3 (Version None)
Quarter: 2012Q2

REPORT INFORMATION
  Report Type: 
  Country: None (occurrence: None)
  Receive Date: 20120426
  Receipt Date: 20120418
  Transmission Date: 20120825
  Serious: Yes (Hospitalization)
  Sender: FDA-Public Use
  Company Number: US-SANOFI-AVENTIS-2012SA027614

PATIENT
  Age: 72 Year
  Sex: Female
  Weight: 73.12 kg

DRUGS (9)
  1. OXALIPLATIN [Suspect]
     Indication: COLORECTAL CANCER
     Dosage: DAY ONE AND 15 EVERY 28 DAYS
     Route: 042
     Dates: start: 20120314, end: 20120314
  2. OXALIPLATIN [Suspect]
     Dosage: DAY ONE AND 15 EVERY 28 DAYS
     Route: 042
     Dates: start: 20120411, end: 20120411
  3. BEVACIZUMAB [Suspect]
     Indication: COLORECTAL CANCER
     Route: 042
  4. LEUCOVORIN CALCIUM [Suspect]
     Indication: COLORECTAL CANCER
     Dosage: DAY ONE AND 15 EVERY 28 DAYS
     Route: 042
     Dates: start: 20120411
  5. LEUCOVORIN CALCIUM [Suspect]
     Route: 042
  6. BEVACIZUMAB [Suspect]
     Dosage: DAY ONE AND 15 EVERY 28 DAYS
     Route: 042
     Dates: start: 20120411
  7. FLUOROURACIL [Suspect]
     Indication: COLORECTAL CANCER
     Dosage: DAY ONE AND 15 EVERY 28 DAYS
     Route: 042
     Dates: start: 20120411
  8. FLUOROURACIL [Suspect]
     Route: 042
  9. FLUOROURACIL [Suspect]
     Dosage: DAY ONE AND 15 EVERY 28 DAYS
     Route: 042
     Dates: start: 20120411

REACTIONS (2)
  - CARDIAC TAMPONADE [None]
  - PERICARDIAL EFFUSION [None]
